FAERS Safety Report 13485767 (Version 2)
Quarter: 2017Q2

REPORT INFORMATION
  Report Type: Spontaneous
  Country: US (occurrence: US)
  Receive Date: 20170426
  Receipt Date: 20170515
  Transmission Date: 20170830
  Serious: Yes (Hospitalization, Other)
  Sender: FDA-Public Use
  Company Number: US-PFIZER INC-2017177184

PATIENT
  Age: 72 Year
  Sex: Female

DRUGS (2)
  1. LATANOPROST. [Suspect]
     Active Substance: LATANOPROST
     Indication: GLAUCOMA
     Dosage: 1 GTT, UNK
  2. LATANOPROST. [Suspect]
     Active Substance: LATANOPROST
     Indication: CATARACT

REACTIONS (3)
  - Drug intolerance [Unknown]
  - Eye pain [Unknown]
  - Eye irritation [Unknown]
